FAERS Safety Report 7126200-8 (Version None)
Quarter: 2010Q4

REPORT INFORMATION
  Report Type: 
  Country: None (occurrence: None)
  Receive Date: 20101129
  Receipt Date: 20101117
  Transmission Date: 20110411
  Serious: Yes (Hospitalization)
  Sender: FDA-Public Use
  Company Number: JP-SANOFI-AVENTIS-2010SA070170

PATIENT
  Age: 76 Year
  Sex: Male

DRUGS (12)
  1. PLAVIX [Suspect]
  2. 8-HOUR BAYER [Concomitant]
  3. PLETAL [Concomitant]
  4. AMIODARONE HCL [Concomitant]
  5. AMARYL [Concomitant]
  6. MIGLITOL [Concomitant]
  7. THYRADIN [Concomitant]
  8. HYDROCHLOROTHIAZIDE/LOSARTAN POTASSIUM [Concomitant]
  9. ARTIST [Concomitant]
  10. LIPITOR [Concomitant]
  11. SIGMART [Concomitant]
  12. TAKEPRON [Concomitant]

REACTIONS (2)
  - COUGH [None]
  - INTERSTITIAL LUNG DISEASE [None]
